FAERS Safety Report 15321167 (Version 1)
Quarter: 2018Q3

REPORT INFORMATION
  Report Type: Spontaneous
  Country: US (occurrence: US)
  Receive Date: 20180827
  Receipt Date: 20180827
  Transmission Date: 20181010
  Serious: No
  Sender: FDA-Public Use
  Company Number: US-SA-2018SA237010

PATIENT
  Age: 49 Year
  Sex: Male

DRUGS (2)
  1. ALIROCUMAB PREFILLED PEN [Suspect]
     Active Substance: ALIROCUMAB
     Indication: AMINO ACID METABOLISM DISORDER
     Dosage: UNK UNK, QOW
     Dates: start: 20160809
  2. PRALUENT [Suspect]
     Active Substance: ALIROCUMAB
     Indication: AMINO ACID METABOLISM DISORDER
     Dosage: 1 ML, QOW
     Route: 058
     Dates: start: 20160809

REACTIONS (2)
  - Decreased appetite [Unknown]
  - Dysgeusia [Unknown]
